FAERS Safety Report 6913333-1 (Version None)
Quarter: 2010Q3

REPORT INFORMATION
  Report Type: 
  Country: None (occurrence: None)
  Receive Date: 20100809
  Receipt Date: 20100708
  Transmission Date: 20110219
  Serious: No
  Sender: FDA-Public Use
  Company Number: US-BAYER-201027924NA

PATIENT
  Age: 27 Year
  Sex: Male

DRUGS (1)
  1. MAGNEVIST [Suspect]
     Indication: NUCLEAR MAGNETIC RESONANCE IMAGING
     Dosage: AS USED: 17 ML  UNIT DOSE: 20 ML
     Route: 042
     Dates: start: 20100706, end: 20100706

REACTIONS (2)
  - NAUSEA [None]
  - VOMITING [None]
